FAERS Safety Report 8613379-1 (Version None)
Quarter: 2012Q3

REPORT INFORMATION
  Report Type: 
  Country: None (occurrence: None)
  Receive Date: 20120822
  Receipt Date: 20120723
  Transmission Date: 20120928
  Serious: Yes (Hospitalization)
  Sender: FDA-Public Use
  Company Number: US-009507513-1207USA011283

PATIENT

DRUGS (5)
  1. ZOCOR [Suspect]
     Dosage: 80 MG, UNK
     Route: 048
  2. TAMSULOSIN HYDROCHLORIDE [Concomitant]
  3. EXELON [Concomitant]
  4. PLAVIX [Concomitant]
  5. LITHIUM CARBONATE [Concomitant]

REACTIONS (6)
  - FALL [None]
  - SYNCOPE [None]
  - AGITATION [None]
  - CONFUSIONAL STATE [None]
  - RHABDOMYOLYSIS [None]
  - RENAL FAILURE ACUTE [None]
